FAERS Safety Report 21932524 (Version 1)
Quarter: 2023Q1

REPORT INFORMATION
  Report Type: Spontaneous
  Country: DE (occurrence: None)
  Receive Date: 20230131
  Receipt Date: 20230131
  Transmission Date: 20230417
  Serious: Yes (Hospitalization)
  Sender: FDA-Public Use
  Company Number: 2023A019061

PATIENT
  Sex: Female

DRUGS (2)
  1. SEROQUEL XR [Suspect]
     Active Substance: QUETIAPINE FUMARATE
     Indication: Schizophrenia
     Dosage: IN THE EVENING
     Route: 048
     Dates: start: 2006
  2. SEROQUEL [Suspect]
     Active Substance: QUETIAPINE FUMARATE
     Indication: Schizophrenia
     Dosage: 2 TIMES DAILY
     Route: 048

REACTIONS (1)
  - Schizophrenia [Recovered/Resolved]

NARRATIVE: CASE EVENT DATE: 20150101
